FAERS Safety Report 9345322 (Version 2)
Quarter: 2014Q1

REPORT INFORMATION
  Report Type: Spontaneous
  Country: US (occurrence: US)
  Receive Date: 20130613
  Receipt Date: 20140210
  Transmission Date: 20141002
  Serious: Yes (Hospitalization, Disabling)
  Sender: FDA-Public Use
  Company Number: US-B.I. PHARMACEUTICALS,INC./RIDGEFIELD-2013-BI-16591BP

PATIENT
  Age: 77 Year
  Sex: Female
  Weight: 65.77 kg

DRUGS (16)
  1. PRADAXA [Suspect]
     Indication: CEREBROVASCULAR ACCIDENT PROPHYLAXIS
     Dosage: 300 MG
     Dates: start: 20101206, end: 20120315
  2. PRADAXA [Suspect]
     Indication: THROMBOSIS PROPHYLAXIS
  3. NITROGLYCERIN [Concomitant]
     Route: 060
  4. OXYGEN [Concomitant]
  5. VITAMIN D [Concomitant]
     Dosage: 2000 U
  6. VITAMIN B12 [Concomitant]
     Dosage: 33.3333 MCG
     Route: 030
  7. FERROUS SULFATE [Concomitant]
     Dosage: 975 MG
  8. KLOR-CON [Concomitant]
     Dosage: 10 MEQ
  9. FOLIC ACID [Concomitant]
     Dosage: 3 MG
  10. FUROSEMIDE [Concomitant]
     Dosage: 240 MG
  11. GLIPIZIDE [Concomitant]
     Dosage: 20 MG
  12. LEVOTHYROXINE [Concomitant]
     Dosage: 0.088 MG
  13. METFORMIN [Concomitant]
     Dosage: 2000 MG
  14. SIMVASTATIN [Concomitant]
     Dosage: 5 MG
  15. IMODIUM [Concomitant]
  16. METOCLOPRAMIDE [Concomitant]
     Dosage: 10 MG

REACTIONS (3)
  - Vitreous haemorrhage [Unknown]
  - Gastrointestinal haemorrhage [Recovered/Resolved]
  - Cerebrovascular accident [Unknown]
